FAERS Safety Report 6241273-2 (Version None)
Quarter: 2009Q2

REPORT INFORMATION
  Report Type: 
  Country: None (occurrence: None)
  Receive Date: 20090619
  Receipt Date: 20090619
  Transmission Date: 20091009
  Serious: Yes (Disabling)
  Sender: FDA-Public Use
  Company Number: None

PATIENT
  Age: 68 Year
  Sex: Female
  Weight: 74 kg

DRUGS (19)
  1. AMIODARONE HCL [Suspect]
     Indication: ATRIAL FIBRILLATION
  2. AMIODARONE HCL [Suspect]
  3. CLOPIDOGREL [Concomitant]
  4. DALTEPARIN SODIUM [Concomitant]
  5. GUAIFENESIN DM [Concomitant]
  6. DILTIAZEM [Concomitant]
  7. CARDIZEM [Concomitant]
  8. DIPHENHYDRAMINE HCL [Concomitant]
  9. ESCITALOPRAM [Concomitant]
  10. FLUTICASONE-SALMETEROL [Concomitant]
  11. FUROSEMIDE INTENSOL [Concomitant]
  12. LEVALBUTEROL HCL [Concomitant]
  13. LEVAQUIN [Concomitant]
  14. LISINOPRIL [Concomitant]
  15. METHYLPREDNISOLONE [Concomitant]
  16. PANTOPRAZOLE SODIUM [Concomitant]
  17. NITROGLYCERIN [Concomitant]
  18. TIOTROPIUM [Concomitant]
  19. ZOLPIDEM [Concomitant]

REACTIONS (2)
  - ACUTE RESPIRATORY FAILURE [None]
  - PULMONARY OEDEMA [None]
